FAERS Safety Report 10222152 (Version 1)
Quarter: 2014Q1

REPORT INFORMATION
  Report Type: Spontaneous
  Country: US (occurrence: None)
  Receive Date: 20140306
  Receipt Date: 20140306
  Transmission Date: 20141002
  Serious: Yes (Other)
  Sender: FDA-Public Use
  Company Number: 163-21880-13050031

PATIENT
  Age: 60 Year
  Sex: Female
  Weight: 61.2 kg

DRUGS (8)
  1. REVLIMID (LENALIDOMIDE) (15 MILLIGRAM, CAPSULES) [Suspect]
     Indication: PLASMA CELL MYELOMA
     Route: 048
     Dates: start: 201101
  2. TRAZODONE (TRAZODONE) [Concomitant]
  3. ASPIRIN (ACETYLSALICYLIC ACID) [Concomitant]
  4. ZOMETA (ZOLEDRONIC ACID) [Concomitant]
  5. CLONAZEPAM (CLONAZEPAM) [Concomitant]
  6. CITALOPRAM (CITALOPRAM) [Concomitant]
  7. IBUPROFEN (IBUPROFEN) [Suspect]
  8. DEXILANT (DEXLANSOPRAZOLE) [Concomitant]

REACTIONS (3)
  - Diverticulitis [None]
  - Anxiety [None]
  - Diarrhoea [None]
